FAERS Safety Report 11204982 (Version 4)
Quarter: 2015Q4

REPORT INFORMATION
  Report Type: Report from Study
  Country: US (occurrence: US)
  Receive Date: 20150622
  Receipt Date: 20151030
  Transmission Date: 20160304
  Serious: Yes (Death, Hospitalization)
  Sender: FDA-Public Use
  Company Number: US-ROCHE-1593882

PATIENT
  Age: 60 Year
  Sex: Female
  Weight: 58.7 kg

DRUGS (5)
  1. CARBOPLATIN. [Suspect]
     Active Substance: CARBOPLATIN
     Indication: OVARIAN EPITHELIAL CANCER
     Dosage: OVER 30 MINS ON DAY 1?CYCLE 2 AUC 6 IV OVER 30 MINS ON DAY 1
     Route: 042
     Dates: start: 20150507, end: 20150507
  2. TAXOL [Suspect]
     Active Substance: PACLITAXEL
     Indication: OVARIAN EPITHELIAL CANCER
     Dosage: 80 MG/M2 IV OVER 1 HR ON DAYS 1 AND 8 AND 15
     Route: 042
     Dates: start: 20150507, end: 20150521
  3. BEVACIZUMAB [Suspect]
     Active Substance: BEVACIZUMAB
     Indication: OVARIAN EPITHELIAL CANCER
     Route: 042
     Dates: start: 20150309
  4. VELIPARIB [Suspect]
     Active Substance: VELIPARIB
     Indication: OVARIAN EPITHELIAL CANCER
     Dosage: CYCLE 1  200 MG PO BID ON DAYS 2 AND 5
     Route: 048
     Dates: start: 20150505, end: 20150511
  5. BEVACIZUMAB [Suspect]
     Active Substance: BEVACIZUMAB
     Dosage: CYCLE 2  15MG/KG IV OVER 30 TO 90 MINS ON DAY 1?CYCLES 7 TO 22 BEVACIZUMAB: 15 MG/KG IV OVER 30 TO 9
     Route: 042
     Dates: start: 20150507, end: 20150507

REACTIONS (12)
  - Pelvic infection [Fatal]
  - Blood creatinine increased [Unknown]
  - Dehydration [Fatal]
  - Cardiac arrest [Fatal]
  - Hypotension [Unknown]
  - Ventricular tachycardia [Unknown]
  - Gastrointestinal anastomotic leak [Fatal]
  - Bradycardia [Unknown]
  - Hypoxia [Fatal]
  - Lung infection [Fatal]
  - Hyponatraemia [Fatal]
  - Hyporesponsive to stimuli [Unknown]

NARRATIVE: CASE EVENT DATE: 20150519
